FAERS Safety Report 6746024-0 (Version None)
Quarter: 2010Q2

REPORT INFORMATION
  Report Type: 
  Country: None (occurrence: None)
  Receive Date: 20100526
  Receipt Date: 20100511
  Transmission Date: 20101027
  Serious: Yes (Other)
  Sender: FDA-Public Use
  Company Number: B0654131A

PATIENT

DRUGS (3)
  1. MELPHALAN (MELPHALAN) (FORMULATION UNKNOWN) (GENERIC) [Suspect]
     Indication: RETINOBLASTOMA
  2. ANESTH.FOR OP.PROCEDURE [Concomitant]
  3. ANTICOAGULANT [Concomitant]

REACTIONS (5)
  - FACE OEDEMA [None]
  - MYOSITIS [None]
  - RETINAL EXUDATES [None]
  - RETINAL HAEMORRHAGE [None]
  - RETINOPATHY [None]
